FAERS Safety Report 5616097-7 (Version None)
Quarter: 2008Q1

REPORT INFORMATION
  Report Type: 
  Country: None (occurrence: None)
  Receive Date: 20080206
  Receipt Date: 20080125
  Transmission Date: 20080703
  Serious: Yes (Death, Other)
  Sender: FDA-Public Use
  Company Number: US-PFIZER INC-2008007804

PATIENT
  Sex: Male

DRUGS (1)
  1. AMLODIPINE [Suspect]

REACTIONS (3)
  - DEATH [None]
  - NEUROPATHY PERIPHERAL [None]
  - RENAL FAILURE [None]
